FAERS Safety Report 9912009 (Version 1)
Quarter: 2014Q1

REPORT INFORMATION
  Report Type: Spontaneous
  Country: US (occurrence: US)
  Receive Date: 20140219
  Receipt Date: 20140219
  Transmission Date: 20141002
  Serious: Yes (Other)
  Sender: FDA-Public Use
  Company Number: US-MYLANLABS-PF-2013272180

PATIENT
  Age: 45 Year
  Sex: Female
  Weight: 49.44 kg

DRUGS (1)
  1. EPIPEN [Suspect]
     Indication: ANAPHYLACTIC REACTION
     Dosage: 0.3 MG, UNK
     Route: 030

REACTIONS (2)
  - Drug ineffective [Recovered/Resolved]
  - Product packaging quantity issue [None]
